FAERS Safety Report 13484819 (Version 2)
Quarter: 2017Q2

REPORT INFORMATION
  Report Type: Spontaneous
  Country: IT (occurrence: IT)
  Receive Date: 20170425
  Receipt Date: 20170526
  Transmission Date: 20170830
  Serious: Yes (Other)
  Sender: FDA-Public Use
  Company Number: IT-ROCHE-1916708

PATIENT
  Age: 45 Year
  Sex: Female
  Weight: 75 kg

DRUGS (4)
  1. HERCEPTIN [Suspect]
     Active Substance: TRASTUZUMAB
     Indication: BREAST CANCER
     Route: 058
     Dates: start: 20161123, end: 20170307
  2. PACLITAXEL. [Suspect]
     Active Substance: PACLITAXEL
     Indication: BREAST CANCER
     Route: 042
     Dates: start: 20161123, end: 20170214
  3. PACLITAXEL. [Suspect]
     Active Substance: PACLITAXEL
     Dosage: 4TH CYCLE
     Route: 042
  4. PACLITAXEL. [Suspect]
     Active Substance: PACLITAXEL
     Dosage: 11TH CYCLE
     Route: 042

REACTIONS (7)
  - Orbital oedema [Not Recovered/Not Resolved]
  - Epistaxis [Recovering/Resolving]
  - Anaemia [Recovering/Resolving]
  - Pain in extremity [Unknown]
  - Influenza [Recovering/Resolving]
  - Paraesthesia [Not Recovered/Not Resolved]
  - Gastrointestinal motility disorder [Recovering/Resolving]

NARRATIVE: CASE EVENT DATE: 20161201
